FAERS Safety Report 8859512 (Version 2)
Quarter: 2012Q4

REPORT INFORMATION
  Report Type: 
  Country: US (occurrence: US)
  Receive Date: 20121024
  Receipt Date: 20121219
  Transmission Date: 20130627
  Serious: Yes (Hospitalization, Other)
  Sender: FDA-Public Use
  Company Number: US-ELI_LILLY_AND_COMPANY-US201210004137

PATIENT
  Age: 47 Year
  Sex: Male
  Weight: 103.86 kg

DRUGS (4)
  1. ZYPREXA RELPREVV [Suspect]
     Indication: SCHIZOPHRENIA
     Dosage: 300 mg, 2/M
     Route: 030
     Dates: start: 20110121, end: 201210
  2. LATUDA [Concomitant]
     Dosage: 120 mg, qd
     Route: 048
  3. LUVOX [Concomitant]
     Dosage: 200 mg, bid
     Route: 048
  4. KLONOPIN [Concomitant]
     Dosage: 4 mg, qd
     Route: 048

REACTIONS (4)
  - Pulmonary embolism [Recovered/Resolved with Sequelae]
  - Confusional state [Unknown]
  - Disorientation [Unknown]
  - Asthenia [Unknown]
